FAERS Safety Report 4766848-9 (Version None)
Quarter: 2005Q3

REPORT INFORMATION
  Report Type: 
  Country: None (occurrence: None)
  Receive Date: 20050909
  Receipt Date: 20050902
  Transmission Date: 20060218
  Serious: Yes (Hospitalization)
  Sender: FDA-Public Use
  Company Number: 2005-132170-NL

PATIENT
  Age: 73 Year
  Sex: Male

DRUGS (7)
  1. ROCURONIUM BROMIDE [Suspect]
     Dosage: INTRAVENOUS (NOS)
     Route: 042
     Dates: start: 20050120
  2. PROPOFOL [Suspect]
     Dosage: INTRAVENOUS (NOS)
     Route: 042
     Dates: start: 20050120
  3. MORPHINE SULFATE [Suspect]
     Dates: start: 20050120
  4. METOCLOPRAMIDE [Suspect]
     Dates: start: 20050120
  5. SODIUM [Suspect]
     Dates: start: 20050120
  6. SEVOFLURANE [Suspect]
     Dates: start: 20050120
  7. PARECOXIB SODIUM [Suspect]
     Indication: SENSORY DISTURBANCE
     Dates: start: 20050120

REACTIONS (1)
  - CEREBROVASCULAR ACCIDENT [None]
